FAERS Safety Report 4585540-7 (Version None)
Quarter: 2005Q1

REPORT INFORMATION
  Report Type: 
  Country: None (occurrence: None)
  Receive Date: 20050214
  Receipt Date: 20040920
  Transmission Date: 20050727
  Serious: Yes (Hospitalization)
  Sender: FDA-Public Use
  Company Number: 05-055

PATIENT
  Age: 70 Year
  Sex: Female

DRUGS (17)
  1. DEXAMETHASONE [Suspect]
     Indication: MULTIPLE MYELOMA
     Dosage: 40MG/DAY
     Dates: start: 20020220, end: 20020223
  2. DEXAMETHASONE [Suspect]
     Indication: MULTIPLE MYELOMA
     Dosage: 40MG/DAY
     Dates: start: 20020320, end: 20020323
  3. OXYCODONE [Concomitant]
  4. PAROXETINE [Concomitant]
  5. CLONAZEPAM [Concomitant]
  6. EPOETIN ALPA [Concomitant]
  7. LOPERAMIDE HCL [Concomitant]
  8. SENNA [Concomitant]
  9. ACETAMINOPHEN [Concomitant]
  10. DIPHENHYDRAMINE HCL [Concomitant]
  11. FUROSEMIDE [Concomitant]
  12. IBUPROFEN [Concomitant]
  13. GABAPENTIN [Concomitant]
  14. PAMIDRONATE DISODIUM [Concomitant]
  15. TRIMETHOPRIM-SULFAMETHOXAZOLE [Concomitant]
  16. OMEPRAZOLE [Concomitant]
  17. MAGNEXIUM HYDROXIDE [Concomitant]

REACTIONS (4)
  - ALPHA HAEMOLYTIC STREPTOCOCCAL INFECTION [None]
  - BILE DUCT OBSTRUCTION [None]
  - CHOLANGITIS [None]
  - STAPHYLOCOCCAL INFECTION [None]
